FAERS Safety Report 21687628 (Version 3)
Quarter: 2023Q1

REPORT INFORMATION
  Report Type: Spontaneous
  Country: JP (occurrence: JP)
  Receive Date: 20221206
  Receipt Date: 20230203
  Transmission Date: 20230418
  Serious: Yes (Other)
  Sender: FDA-Public Use
  Company Number: JP-KOREA IPSEN Pharma-2022-10783

PATIENT
  Age: 59 Year
  Sex: Male

DRUGS (8)
  1. LANREOTIDE ACETATE [Suspect]
     Active Substance: LANREOTIDE ACETATE
     Indication: Thyroid stimulating hormone-producing pituitary tumour
     Dosage: 90 MILLIGRAM PER 4 WEEKS
     Route: 058
     Dates: start: 20210918, end: 20210918
  2. NIFEDIPINE [Concomitant]
     Active Substance: NIFEDIPINE
     Indication: Hypertension
  3. OLMESARTAN [Concomitant]
     Active Substance: OLMESARTAN
     Indication: Hypertension
  4. CARBIMAZOLE [Concomitant]
     Active Substance: CARBIMAZOLE
     Indication: Thyroid stimulating hormone-producing pituitary tumour
     Dates: start: 2002, end: 202211
  5. REBAMIPIDE [Concomitant]
     Active Substance: REBAMIPIDE
  6. TSUMURA RYOKEIJUTSUKANTO EXTRACT GRANULES FOR ETHICAL USE [Concomitant]
  7. PITAVASTATIN CALCIUM [Concomitant]
     Active Substance: PITAVASTATIN CALCIUM
     Indication: Dyslipidaemia
     Route: 048
  8. ZETIA [Concomitant]
     Active Substance: EZETIMIBE
     Indication: Dyslipidaemia
     Route: 048

REACTIONS (6)
  - Liver disorder [Recovered/Resolved]
  - Chromaturia [Recovered/Resolved]
  - Bradycardia [Recovered/Resolved]
  - Diarrhoea [Recovered/Resolved]
  - Asthenia [Recovered/Resolved]
  - Epigastric discomfort [Recovered/Resolved]

NARRATIVE: CASE EVENT DATE: 20211016
